FAERS Safety Report 5361840-8 (Version None)
Quarter: 2007Q2

REPORT INFORMATION
  Report Type: 
  Country: None (occurrence: None)
  Receive Date: 20070619
  Receipt Date: 20070606
  Transmission Date: 20071010
  Serious: Yes (Other)
  Sender: FDA-Public Use
  Company Number: PHNU2007DE02027

PATIENT
  Sex: Female

DRUGS (3)
  1. LOCOL [Suspect]
     Indication: HYPERCHOLESTEROLAEMIA
     Dosage: 20 MG, QD
     Route: 048
     Dates: start: 20060501, end: 20060801
  2. INEGY [Suspect]
     Indication: HYPERCHOLESTEROLAEMIA
     Dosage: 10/20MG/DAY
     Dates: start: 20070201, end: 20070501
  3. ATORVASTATIN CALCIUM [Suspect]
     Indication: HYPERCHOLESTEROLAEMIA
     Dosage: 20 MG, QD
     Route: 048
     Dates: start: 20061001, end: 20070101

REACTIONS (4)
  - AORTIC ARTERIOSCLEROSIS [None]
  - BLOOD CREATINE PHOSPHOKINASE INCREASED [None]
  - DRUG INTOLERANCE [None]
  - HYPERTENSION [None]
